FAERS Safety Report 6505901-6 (Version None)
Quarter: 2009Q4

REPORT INFORMATION
  Report Type: 
  Country: None (occurrence: None)
  Receive Date: 20091218
  Receipt Date: 20091210
  Transmission Date: 20100525
  Serious: Yes (Other)
  Sender: FDA-Public Use
  Company Number: JP-BRISTOL-MYERS SQUIBB COMPANY-14897425

PATIENT
  Age: 60 Year
  Sex: Female

DRUGS (1)
  1. MITOMYCIN [Suspect]
     Indication: BLADDER CANCER
     Dosage: FORM=INJ
     Route: 043
     Dates: start: 20090422

REACTIONS (1)
  - ALLERGIC CYSTITIS [None]
